FAERS Safety Report 25479236 (Version 2)
Quarter: 2025Q3

REPORT INFORMATION
  Report Type: Spontaneous
  Country: EU (occurrence: EU)
  Receive Date: 20250625
  Receipt Date: 20250711
  Transmission Date: 20251020
  Serious: Yes (Hospitalization, Other)
  Sender: ORPHALAN
  Company Number: EU-ORPHALAN-FR-ORP-25-00150

PATIENT

DRUGS (1)
  1. TRIENTINE TETRAHYDROCHLORIDE [Suspect]
     Active Substance: TRIENTINE TETRAHYDROCHLORIDE
     Route: 065

REACTIONS (2)
  - Liver transplant [Unknown]
  - Treatment noncompliance [Unknown]
